FAERS Safety Report 9948522 (Version 1)
Quarter: 2014Q1

REPORT INFORMATION
  Report Type: Report from Study
  Country: US (occurrence: US)
  Receive Date: 20140303
  Receipt Date: 20140303
  Transmission Date: 20141002
  Serious: No
  Sender: FDA-Public Use
  Company Number: US-ABBVIE-13P-163-1055923-00

PATIENT
  Age: 52 Year
  Sex: Male

DRUGS (8)
  1. HUMIRA [Suspect]
     Indication: PSORIATIC ARTHROPATHY
  2. CELEBREX [Concomitant]
     Indication: PRODUCT USED FOR UNKNOWN INDICATION
  3. METHOTREXATE [Concomitant]
     Indication: PRODUCT USED FOR UNKNOWN INDICATION
  4. METHYLPREDNISOLONE [Concomitant]
     Indication: PRODUCT USED FOR UNKNOWN INDICATION
     Dosage: DAILY
  5. FOLIC ACID [Concomitant]
     Indication: PRODUCT USED FOR UNKNOWN INDICATION
     Dosage: DAILY
  6. LISINOPRIL [Concomitant]
     Indication: PRODUCT USED FOR UNKNOWN INDICATION
     Dosage: 10 MG DAILY
  7. TRAMADOL [Concomitant]
     Indication: PRODUCT USED FOR UNKNOWN INDICATION
     Dosage: AS NEEDED
  8. DILTIAZEM [Concomitant]
     Indication: PRODUCT USED FOR UNKNOWN INDICATION

REACTIONS (2)
  - Joint swelling [Not Recovered/Not Resolved]
  - Arthralgia [Not Recovered/Not Resolved]
